FAERS Safety Report 17791840 (Version 1)
Quarter: 2020Q2

REPORT INFORMATION
  Report Type: Spontaneous
  Country: US (occurrence: US)
  Receive Date: 20200515
  Receipt Date: 20200515
  Transmission Date: 20200714
  Serious: No
  Sender: FDA-Public Use
  Company Number: US-EMERGENT BIOSOLUTIONS,-20000240SP

PATIENT
  Age: 54 Year
  Sex: Female
  Weight: 99.77 kg

DRUGS (4)
  1. NARCAN [Suspect]
     Active Substance: NALOXONE HYDROCHLORIDE
     Indication: PRODUCT USED FOR UNKNOWN INDICATION
     Dosage: 4 MILLIGRAM, QD
     Route: 045
     Dates: start: 20200313
  2. TYLENOL [Concomitant]
     Active Substance: ACETAMINOPHEN
     Indication: PAIN
     Dosage: 1 DOSAGE FORM, Q6H
  3. INSULIN [Concomitant]
     Active Substance: INSULIN NOS
     Route: 065
  4. XANAX [Concomitant]
     Active Substance: ALPRAZOLAM
     Dosage: UNK, BID
     Route: 065

REACTIONS (2)
  - Unintentional use for unapproved indication [Unknown]
  - Product use complaint [Unknown]

NARRATIVE: CASE EVENT DATE: 20200313
